FAERS Safety Report 10996489 (Version 1)
Quarter: 2015Q2

REPORT INFORMATION
  Report Type: Spontaneous
  Country: US (occurrence: None)
  Receive Date: 20150407
  Receipt Date: 20150407
  Transmission Date: 20150821
  Serious: Yes (Death, Hospitalization)
  Sender: FDA-Public Use
  Company Number: None

PATIENT
  Age: 42 Year
  Sex: Male
  Weight: 202.1 kg

DRUGS (2)
  1. IDARUBICIN [Suspect]
     Active Substance: IDARUBICIN
     Dates: end: 20150216
  2. CYTARABINE. [Suspect]
     Active Substance: CYTARABINE
     Dates: end: 20140217

REACTIONS (6)
  - Pulmonary mass [None]
  - Stenotrophomonas sepsis [None]
  - Haemodialysis [None]
  - Acute kidney injury [None]
  - Respiratory failure [None]
  - Septic shock [None]

NARRATIVE: CASE EVENT DATE: 20150302
